FAERS Safety Report 9965510 (Version 1)
Quarter: 2014Q1

REPORT INFORMATION
  Report Type: Report from Study
  Country: US (occurrence: US)
  Receive Date: 20140305
  Receipt Date: 20140305
  Transmission Date: 20141002
  Serious: No
  Sender: FDA-Public Use
  Company Number: US-ABBVIE-13P-163-1126868-00

PATIENT
  Age: 31 Year
  Sex: Female
  Weight: 45.4 kg

DRUGS (2)
  1. HUMIRA [Suspect]
     Indication: CROHN^S DISEASE
     Route: 058
     Dates: start: 2011
  2. SYNTHROID [Concomitant]
     Indication: HYPOTHYROIDISM
     Route: 048

REACTIONS (8)
  - Skin discolouration [Not Recovered/Not Resolved]
  - Rash erythematous [Recovering/Resolving]
  - Acne [Not Recovered/Not Resolved]
  - Pain [Recovering/Resolving]
  - Eczema [Not Recovered/Not Resolved]
  - Eczema [Recovering/Resolving]
  - Paraesthesia [Recovered/Resolved]
  - Arthralgia [Recovered/Resolved]
